FAERS Safety Report 4354027-9 (Version None)
Quarter: 2004Q2

REPORT INFORMATION
  Report Type: 
  Country: None (occurrence: None)
  Receive Date: 20040503
  Receipt Date: 20040426
  Transmission Date: 20050107
  Serious: Yes (Disabling)
  Sender: FDA-Public Use
  Company Number: STA-AE-04-MTX-171

PATIENT
  Age: 63 Year
  Sex: Male

DRUGS (16)
  1. METHOTREXATE [Suspect]
     Indication: RHEUMATOID ARTHRITIS
     Dosage: 20 MG PER WEEK, ORAL
     Route: 048
     Dates: end: 20030929
  2. METHOTREXATE [Suspect]
     Indication: RHEUMATOID ARTHRITIS
     Dosage: 25 MG PER WEEK, ORAL
     Route: 048
     Dates: start: 20030930, end: 20040201
  3. METHOTREXATE [Suspect]
     Indication: RHEUMATOID ARTHRITIS
     Dosage: 30 MG PER WEEK, ORAL
     Route: 048
     Dates: start: 20040201
  4. WARFARIN SODIUM [Concomitant]
  5. ATORVASTATIN (ATORVASTATIN) [Concomitant]
  6. ENALAPRIL MALEATE [Concomitant]
  7. FUROSEMIDE [Concomitant]
  8. DIGOXIN [Concomitant]
  9. TRAMADOL HCL [Concomitant]
  10. CO-PROXAMOL (DEXTROPROXYPHENE HYDROCHLORIDE/PARACETAMOL) [Concomitant]
  11. VERAPAMIL [Concomitant]
  12. CELECOXIB (CELECOXIB) [Concomitant]
  13. HYDROXYCHLOROQUINE SULFATE [Concomitant]
  14. DOXAZOSIN (DOXAZOSIN) [Concomitant]
  15. SULFASALAZINE [Concomitant]
  16. PIZOTIFEN (PIZOTIFEN) [Concomitant]

REACTIONS (3)
  - ASTHMA [None]
  - LOWER RESPIRATORY TRACT INFECTION [None]
  - OVERDOSE [None]
